FAERS Safety Report 6986928-7 (Version None)
Quarter: 2010Q4

REPORT INFORMATION
  Report Type: 
  Country: None (occurrence: None)
  Receive Date: 20100915
  Receipt Date: 20090810
  Transmission Date: 20110411
  Serious: No
  Sender: FDA-Public Use
  Company Number: US-WYE-H10541709

PATIENT
  Sex: Female
  Weight: 73.55 kg

DRUGS (5)
  1. PRISTIQ [Suspect]
     Indication: DEPRESSION
     Route: 048
     Dates: start: 20090501, end: 20090808
  2. PRISTIQ [Interacting]
     Dosage: TOOK 3/4 OF A TABLET
     Route: 048
     Dates: start: 20090810, end: 20090810
  3. BUTALBITAL [Interacting]
  4. CLORAZEPATE DIPOTASSIUM [Concomitant]
  5. OXYCODONE HCL [Interacting]

REACTIONS (18)
  - BURNING SENSATION [None]
  - CHILLS [None]
  - CONDITION AGGRAVATED [None]
  - CONSTIPATION [None]
  - DRUG INEFFECTIVE [None]
  - DRUG INTERACTION [None]
  - FEELING ABNORMAL [None]
  - FOOD CRAVING [None]
  - INTENTIONAL DRUG MISUSE [None]
  - MIDDLE EAR EFFUSION [None]
  - PAIN [None]
  - SERUM SEROTONIN INCREASED [None]
  - SKIN DISCOLOURATION [None]
  - THIRST [None]
  - UNEVALUABLE EVENT [None]
  - VERTIGO [None]
  - VISION BLURRED [None]
  - VISUAL IMPAIRMENT [None]
